FAERS Safety Report 21362144 (Version 1)
Quarter: 2022Q3

REPORT INFORMATION
  Report Type: Spontaneous
  Country: DE (occurrence: DE)
  Receive Date: 20220922
  Receipt Date: 20220922
  Transmission Date: 20221027
  Serious: Yes (Hospitalization)
  Sender: FDA-Public Use
  Company Number: DE-NOVARTISPH-NVSC2022DE209085

PATIENT
  Age: 70 Year
  Sex: Male
  Weight: 75 kg

DRUGS (1)
  1. ASPIRIN [Suspect]
     Active Substance: ASPIRIN
     Indication: Product used for unknown indication
     Dosage: 100 MG, QD (100 MG, 1-0-0-0, TABLETTEN)
     Route: 048

REACTIONS (5)
  - Mydriasis [Unknown]
  - Pupillary reflex impaired [Unknown]
  - Fall [Unknown]
  - Subdural haematoma [Unknown]
  - Dyspnoea [Unknown]
